FAERS Safety Report 15365077 (Version 2)
Quarter: 2018Q3

REPORT INFORMATION
  Report Type: Report from Study
  Country: DE (occurrence: DE)
  Receive Date: 20180910
  Receipt Date: 20180920
  Transmission Date: 20181010
  Serious: Yes (Hospitalization)
  Sender: FDA-Public Use
  Company Number: DE-ROCHE-2147541

PATIENT
  Age: 47 Year
  Sex: Female
  Weight: 78 kg

DRUGS (20)
  1. DOXORUBICIN [Suspect]
     Active Substance: DOXORUBICIN
     Indication: TRIPLE NEGATIVE BREAST CANCER
     Dosage: ON 14/JUN/2018 AT 10:45 HOURS, SHE RECEIVED THE MOST RECENT DOSE OF DOXORUBICIN (112 MG) PRIOR TO SE
     Route: 042
     Dates: start: 20180503
  2. BUDESONID [Concomitant]
     Active Substance: BUDESONIDE
     Indication: COUGH
     Route: 050
     Dates: start: 20180601, end: 20180605
  3. PREDNISOLON [Concomitant]
     Active Substance: PREDNISOLONE
     Route: 048
     Dates: start: 20180621, end: 20180624
  4. GRANISETRON [Concomitant]
     Active Substance: GRANISETRON
     Route: 065
     Dates: start: 20180706, end: 20180706
  5. AKYNZEO [Concomitant]
     Active Substance: NETUPITANT\PALONOSETRON HYDROCHLORIDE
     Route: 065
     Dates: start: 20180614, end: 20180614
  6. PARACODIN [Concomitant]
     Active Substance: DIHYDROCODEINE BITARTRATE
     Indication: COUGH
     Route: 065
     Dates: start: 20180622
  7. GRANISETRON [Concomitant]
     Active Substance: GRANISETRON
     Indication: NAUSEA
     Route: 065
     Dates: start: 20180524, end: 20180524
  8. CIPROFLOXACIN. [Concomitant]
     Active Substance: CIPROFLOXACIN
     Indication: COUGH
     Route: 065
     Dates: start: 20180601, end: 20180607
  9. PREDNISOLON [Concomitant]
     Active Substance: PREDNISOLONE
     Route: 048
     Dates: start: 20180613, end: 20180616
  10. BLINDED ATEZOLIZUMAB [Suspect]
     Active Substance: ATEZOLIZUMAB
     Indication: TRIPLE NEGATIVE BREAST CANCER
     Dosage: ON 08/MAR/2018 AT 09:08 HOURS, SHE RECEIVED THE MOST RECENT DOSE OF BLINDED ATEZOLIZUMAB PRIOR TO AD
     Route: 042
     Dates: start: 20180125
  11. GRANISETRON [Concomitant]
     Active Substance: GRANISETRON
     Route: 065
     Dates: start: 20180614, end: 20180614
  12. NAB?PACLITAXEL [Suspect]
     Active Substance: PACLITAXEL
     Indication: TRIPLE NEGATIVE BREAST CANCER
     Dosage: ON 26/APR/2018 AT 12:20 HOURS, SHE RECEIVED THE MOST RECENT DOSE OF PACLITAXEL ALBUMIN (235 MG) PRIO
     Route: 042
     Dates: start: 20180125
  13. AKYNZEO [Concomitant]
     Active Substance: NETUPITANT\PALONOSETRON HYDROCHLORIDE
     Route: 065
     Dates: start: 20180706, end: 20180706
  14. PREDNISOLON [Concomitant]
     Active Substance: PREDNISOLONE
     Indication: COUGH
     Route: 048
     Dates: start: 20180625, end: 20180628
  15. CIPROFLOXACIN. [Concomitant]
     Active Substance: CIPROFLOXACIN
     Indication: NEUTROPENIA
     Route: 065
     Dates: start: 20180622, end: 20180627
  16. PREDNISOLON [Concomitant]
     Active Substance: PREDNISOLONE
     Route: 048
     Dates: start: 20180609, end: 20180612
  17. CYCLOPHOSPHAMIDE. [Suspect]
     Active Substance: CYCLOPHOSPHAMIDE
     Indication: TRIPLE NEGATIVE BREAST CANCER
     Dosage: ON 14/JUN/2018 AT 11:45 HOURS, SHE RECEIVED THE MOST RECENT DOSE OF CYCLOPHOSPHAMIDE (1116 MG) PRIOR
     Route: 042
     Dates: start: 20180503
  18. AKYNZEO [Concomitant]
     Active Substance: NETUPITANT\PALONOSETRON HYDROCHLORIDE
     Indication: NAUSEA
     Route: 065
     Dates: start: 20180524, end: 20180524
  19. PREDNISOLON [Concomitant]
     Active Substance: PREDNISOLONE
     Route: 048
     Dates: start: 20180617, end: 20180620
  20. PREDNISOLON [Concomitant]
     Active Substance: PREDNISOLONE
     Route: 048
     Dates: start: 20180605, end: 20180608

REACTIONS (1)
  - Diabetes mellitus [Not Recovered/Not Resolved]

NARRATIVE: CASE EVENT DATE: 20180628
